FAERS Safety Report 9938478 (Version 2)
Quarter: 2014Q1

REPORT INFORMATION
  Report Type: Report from Study
  Country: US (occurrence: US)
  Receive Date: 20140303
  Receipt Date: 20140303
  Transmission Date: 20141002
  Serious: No
  Sender: FDA-Public Use
  Company Number: US-ABBVIE-12P-163-1009686-00

PATIENT
  Age: 55 Year
  Sex: Female
  Weight: 73.55 kg

DRUGS (5)
  1. HUMIRA [Suspect]
     Indication: CROHN^S DISEASE
     Dosage: LOADING DOSE
     Dates: start: 20121102
  2. UNKNOWN MRI CONTRAST MEDIUM [Suspect]
     Indication: PRODUCT USED FOR UNKNOWN INDICATION
  3. PREDNISONE [Concomitant]
     Indication: CROHN^S DISEASE
     Dates: start: 2012
  4. PREDNISONE [Concomitant]
     Dates: start: 2013
  5. ASACOL [Concomitant]
     Indication: CROHN^S DISEASE

REACTIONS (6)
  - Pruritus generalised [Unknown]
  - Pruritus [Unknown]
  - Throat irritation [Unknown]
  - Lip swelling [Recovered/Resolved]
  - Oral pruritus [Recovered/Resolved]
  - Toothache [Recovered/Resolved]
